FAERS Safety Report 5513686-5 (Version None)
Quarter: 2007Q4

REPORT INFORMATION
  Report Type: 
  Country: None (occurrence: None)
  Receive Date: 20071108
  Receipt Date: 20071023
  Transmission Date: 20080405
  Serious: Yes (Hospitalization)
  Sender: FDA-Public Use
  Company Number: 2007BI020045

PATIENT
  Age: 30 Year
  Sex: Female

DRUGS (3)
  1. AVONEX [Suspect]
     Indication: MULTIPLE SCLEROSIS
     Dosage: 30 UG;QW;IM
     Route: 030
     Dates: start: 20061201
  2. DAIVOBET [Concomitant]
  3. CORTICOSTEROIDS [Concomitant]

REACTIONS (6)
  - ASTHENIA [None]
  - HYPERPATHIA [None]
  - INSOMNIA [None]
  - LYMPHOCYTE COUNT DECREASED [None]
  - MUSCULOSKELETAL STIFFNESS [None]
  - SYSTEMIC LUPUS ERYTHEMATOSUS [None]
